FAERS Safety Report 9516733 (Version 2)
Quarter: 2013Q3

REPORT INFORMATION
  Report Type: Spontaneous
  Country: US (occurrence: US)
  Receive Date: 20130911
  Receipt Date: 20130929
  Transmission Date: 20140515
  Serious: Yes (Other)
  Sender: FDA-Public Use
  Company Number: US-AMGEN-USASP2013062750

PATIENT
  Age: 77 Year
  Sex: Female
  Weight: 81 kg

DRUGS (7)
  1. PROLIA [Suspect]
     Indication: OSTEOPOROSIS POSTMENOPAUSAL
     Dosage: 60 MG, Q6MO
     Route: 058
     Dates: start: 20121023
  2. PROLIA [Suspect]
     Dosage: UNK
     Route: 058
     Dates: start: 20130806
  3. PLENDIL [Concomitant]
  4. MULTIVITAMINS [Concomitant]
  5. ZESTRIL [Concomitant]
  6. COREG [Concomitant]
  7. LANSOPRAZOLE [Concomitant]

REACTIONS (8)
  - Fall [Unknown]
  - Humerus fracture [Unknown]
  - Musculoskeletal discomfort [Unknown]
  - Thermal burn [Recovered/Resolved]
  - Excoriation [Unknown]
  - Nausea [Unknown]
  - Musculoskeletal pain [Unknown]
  - Erythema [Recovered/Resolved]
